FAERS Safety Report 7338082-X (Version None)
Quarter: 2011Q1

REPORT INFORMATION
  Report Type: 
  Country: None (occurrence: None)
  Receive Date: 20110308
  Receipt Date: 20110225
  Transmission Date: 20110831
  Serious: Yes (Hospitalization)
  Sender: FDA-Public Use
  Company Number: PHFR2011GB01332

PATIENT
  Sex: Female

DRUGS (3)
  1. TEGRETOL [Suspect]
     Dosage: 200 MG AM, 100 MG PM
     Route: 048
  2. TEGRETOL [Suspect]
     Dosage: 100 MG, BID
  3. TEGRETOL [Suspect]
     Indication: EPILEPSY
     Dosage: 100 MG + (100 MG + 200 MG)

REACTIONS (1)
  - INCORRECT DOSE ADMINISTERED [None]
